FAERS Safety Report 14200547 (Version 1)
Quarter: 2017Q4

REPORT INFORMATION
  Report Type: Spontaneous
  Country: FR (occurrence: FR)
  Receive Date: 20171117
  Receipt Date: 20171117
  Transmission Date: 20180321
  Serious: Yes (Hospitalization)
  Sender: FDA-Public Use
  Company Number: FR-ELI_LILLY_AND_COMPANY-FR201711005752

PATIENT
  Age: 60 Year
  Sex: Female

DRUGS (6)
  1. IRINOTECAN HOSPIRA [Suspect]
     Active Substance: IRINOTECAN
     Indication: RECTAL ADENOCARCINOMA
     Dosage: UNK UNK, EVERY 14 DAYS
     Route: 065
     Dates: end: 20170202
  2. FLUOROURACILE ACCORD [Suspect]
     Active Substance: FLUOROURACIL
     Indication: RECTAL ADENOCARCINOMA
     Dosage: UNK, UNKNOWN
     Route: 065
     Dates: start: 20160818
  3. ERBITUX [Suspect]
     Active Substance: CETUXIMAB
     Indication: RECTAL ADENOCARCINOMA
     Dosage: 705 MG, 2/W
     Route: 042
     Dates: start: 20170901
  4. FLUOROURACILE ACCORD [Suspect]
     Active Substance: FLUOROURACIL
     Dosage: 3380 MG, UNK
     Route: 042
  5. IRINOTECAN HOSPIRA [Suspect]
     Active Substance: IRINOTECAN
     Dosage: 254 MG, 2/W
     Route: 042
     Dates: start: 20170901
  6. FLUOROURACILE ACCORD [Suspect]
     Active Substance: FLUOROURACIL
     Dosage: 546 MG, UNKNOWN
     Route: 040
     Dates: start: 20160901

REACTIONS (1)
  - Major depression [Recovered/Resolved]

NARRATIVE: CASE EVENT DATE: 20170915
